FAERS Safety Report 8487392 (Version 5)
Quarter: 2013Q3

REPORT INFORMATION
  Report Type: Spontaneous
  Country: JP (occurrence: JP)
  Receive Date: 20120402
  Receipt Date: 20130805
  Transmission Date: 20140515
  Serious: Yes (Death, Hospitalization, Other)
  Sender: FDA-Public Use
  Company Number: JP-ABBOTT-12P-087-0920254-00

PATIENT
  Age: 55 Year
  Sex: Female
  Weight: 53 kg

DRUGS (8)
  1. HUMIRA 40 MG/ 0.8 ML PRE-FILLED SYRINGE [Suspect]
     Indication: RHEUMATOID ARTHRITIS
     Route: 058
     Dates: start: 20091217, end: 20100514
  2. HUMIRA 40 MG/ 0.8 ML PRE-FILLED SYRINGE [Suspect]
     Dates: start: 20100623, end: 20120105
  3. BETAMETHASONE/D-CHLORPHENIRAMINE MALEATE [Concomitant]
     Indication: RHEUMATOID ARTHRITIS
     Route: 048
     Dates: start: 1999, end: 20120105
  4. TEPRENONE [Concomitant]
     Indication: GASTRITIS
  5. ALENDRONATE SODIUM [Concomitant]
     Indication: OSTEOPOROSIS
     Route: 048
     Dates: start: 200609, end: 20120105
  6. METHOTREXATE [Concomitant]
     Indication: RHEUMATOID ARTHRITIS
     Dosage: 4MG / WEEK
     Route: 048
     Dates: start: 20100727, end: 20120105
  7. FOLIC ACID [Concomitant]
     Indication: VITAMIN SUPPLEMENTATION
     Route: 048
     Dates: start: 20100727, end: 20120105
  8. FOLIC ACID [Concomitant]
     Indication: PROPHYLAXIS

REACTIONS (4)
  - Cerebral haemorrhage [Fatal]
  - Knee arthroplasty [Unknown]
  - Rheumatoid arthritis [Recovering/Resolving]
  - Hypertension [Unknown]
